FAERS Safety Report 6512184-X (Version None)
Quarter: 2009Q4

REPORT INFORMATION
  Report Type: 
  Country: None (occurrence: None)
  Receive Date: 20091222
  Receipt Date: 20091215
  Transmission Date: 20100525
  Serious: Yes (Hospitalization, Other)
  Sender: FDA-Public Use
  Company Number: US-ABBOTT-09P-163-0608217-00

PATIENT
  Sex: Female
  Weight: 66.284 kg

DRUGS (3)
  1. HUMIRA [Suspect]
     Indication: PSORIASIS
     Dates: start: 20080801, end: 20090801
  2. TACLONEX OINTMENT [Concomitant]
     Indication: PSORIASIS
  3. CLOBEX SPRAY [Concomitant]
     Indication: PSORIASIS

REACTIONS (7)
  - ARTHROPATHY [None]
  - CARPAL TUNNEL SYNDROME [None]
  - DYSPNOEA [None]
  - FATIGUE [None]
  - MYCOTIC ALLERGY [None]
  - NAUSEA [None]
  - WEIGHT DECREASED [None]
